FAERS Safety Report 5735856-3 (Version None)
Quarter: 2008Q2

REPORT INFORMATION
  Report Type: 
  Country: None (occurrence: None)
  Receive Date: 20080513
  Receipt Date: 20080507
  Transmission Date: 20081010
  Serious: Yes (Other)
  Sender: FDA-Public Use
  Company Number: BR-ELI_LILLY_AND_COMPANY-BR200805001113

PATIENT
  Sex: Male
  Weight: 90 kg

DRUGS (1)
  1. CIALIS [Suspect]
     Indication: ERECTILE DYSFUNCTION
     Dosage: UNK, AS NEEDED
     Route: 065
     Dates: start: 20080301, end: 20080301

REACTIONS (3)
  - DYSPEPSIA [None]
  - SCINTILLATING SCOTOMA [None]
  - VITREOUS DETACHMENT [None]
